FAERS Safety Report 8782911 (Version 5)
Quarter: 2012Q4

REPORT INFORMATION
  Report Type: 
  Country: US (occurrence: US)
  Receive Date: 20120913
  Receipt Date: 20121218
  Transmission Date: 20130627
  Serious: Yes (Hospitalization, Other)
  Sender: FDA-Public Use
  Company Number: US-009507513-1203USA00308

PATIENT

DRUGS (12)
  1. FOSAMAX [Suspect]
     Indication: OSTEOPOROSIS
     Dosage: 70 mg, qw
     Route: 048
     Dates: start: 200204, end: 20101130
  2. ALENDRONATE SODIUM [Suspect]
     Indication: OSTEOPOROSIS
     Dosage: 70 mg, qw
     Route: 048
     Dates: start: 200805, end: 201012
  3. NORCO [Concomitant]
     Indication: PAIN
     Dosage: 10/325 UNK
     Dates: start: 200309, end: 200806
  4. FENTANYL [Concomitant]
     Indication: PAIN
     Dosage: 25 DF, qod
     Route: 003
     Dates: start: 200806
  5. GABAPENTIN [Concomitant]
     Dosage: 400 mg, qd
     Dates: start: 1990
  6. IBUPROFEN [Concomitant]
     Dosage: 200 mg, qd
     Dates: start: 200805
  7. VITAMINS (UNSPECIFIED) [Concomitant]
     Dosage: 1000 Microgram, UNK
     Dates: start: 1997
  8. CYANOCOBALAMIN [Concomitant]
     Dosage: 800 Microgram, UNK
     Dates: start: 1997
  9. CALCIUM (UNSPECIFIED) (+) VITAMIN D (UNSPECIFIED) [Concomitant]
     Dosage: 400 IU, + 600mg
     Dates: start: 1997
  10. VITAMIN E [Concomitant]
     Dosage: 400 IU, UNK
     Dates: start: 1997
  11. FOLIC ACID [Concomitant]
     Dosage: 1000 mg, UNK
     Dates: start: 1997
  12. ASCORBIC ACID [Concomitant]
     Dosage: UNK

REACTIONS (39)
  - Femur fracture [Unknown]
  - Intramedullary rod insertion [Unknown]
  - Radius fracture [Unknown]
  - Open reduction of fracture [Unknown]
  - Peptic ulcer [Unknown]
  - Knee arthroplasty [Unknown]
  - Cholecystectomy [Unknown]
  - Spinal decompression [Unknown]
  - Tonsillectomy [Unknown]
  - Adenoidectomy [Unknown]
  - Nasal septal operation [Unknown]
  - Abdominal hernia repair [Unknown]
  - Skin cancer [Unknown]
  - Anaemia [Unknown]
  - Fall [Unknown]
  - Fall [Unknown]
  - Surgery [Unknown]
  - Endodontic procedure [Unknown]
  - Tooth extraction [Unknown]
  - Fall [Unknown]
  - Reflux gastritis [Unknown]
  - Hiatus hernia [Unknown]
  - Diverticulum [Unknown]
  - Gait disturbance [Unknown]
  - Vasectomy [Unknown]
  - Vasectomy reversal [Unknown]
  - Urinary tract disorder [Unknown]
  - Actinic keratosis [Unknown]
  - Skin ulcer [Unknown]
  - Visual impairment [Unknown]
  - Skin ulcer [Unknown]
  - Somnolence [Unknown]
  - Urinary tract infection [Unknown]
  - Gait disturbance [Unknown]
  - Osteopenia [Unknown]
  - Eczema [Recovered/Resolved]
  - Orthosis user [Unknown]
  - Constipation [Not Recovered/Not Resolved]
  - Gastrooesophageal reflux disease [Unknown]
